FAERS Safety Report 9666688 (Version 4)
Quarter: 2014Q2

REPORT INFORMATION
  Report Type: Spontaneous
  Country: US (occurrence: US)
  Receive Date: 20131104
  Receipt Date: 20140421
  Transmission Date: 20141212
  Serious: No
  Sender: FDA-Public Use
  Company Number: US-BIOGENIDEC-2013BI087190

PATIENT
  Age: 70 Year
  Sex: Female

DRUGS (28)
  1. TECFIDERA [Suspect]
     Indication: RELAPSING-REMITTING MULTIPLE SCLEROSIS
     Dates: start: 20130702
  2. TECFIDERA [Suspect]
     Indication: RELAPSING-REMITTING MULTIPLE SCLEROSIS
     Dates: start: 20130807
  3. TECFIDERA [Suspect]
     Indication: RELAPSING-REMITTING MULTIPLE SCLEROSIS
     Route: 048
     Dates: start: 20130810, end: 20130816
  4. TECFIDERA [Suspect]
     Indication: RELAPSING-REMITTING MULTIPLE SCLEROSIS
     Route: 048
     Dates: start: 20130815
  5. TECFIDERA [Suspect]
     Indication: RELAPSING-REMITTING MULTIPLE SCLEROSIS
     Route: 048
     Dates: start: 20130817
  6. TECFIDERA [Suspect]
     Indication: RELAPSING-REMITTING MULTIPLE SCLEROSIS
     Dates: end: 20131016
  7. TECFIDERA [Suspect]
     Indication: RELAPSING-REMITTING MULTIPLE SCLEROSIS
     Route: 048
     Dates: start: 201308, end: 20131118
  8. TECFIDERA [Suspect]
     Indication: RELAPSING-REMITTING MULTIPLE SCLEROSIS
  9. TYLENOL [Concomitant]
  10. ZINC [Concomitant]
  11. VITAMIN D [Concomitant]
  12. AZELASTINE HCL [Concomitant]
  13. CENTRUM SILVER [Concomitant]
  14. BIOTIN 5000 [Concomitant]
  15. CALCIUM CITRATE +D [Concomitant]
  16. FOLIC ACID [Concomitant]
  17. VITAMIN C [Concomitant]
  18. VITAMIN B12 [Concomitant]
  19. OSTEO BIFLEX [Concomitant]
  20. GABAPENTIN [Concomitant]
  21. AMANTADINE HCL [Concomitant]
  22. PROVIGIL [Concomitant]
  23. PLAVIX [Concomitant]
  24. AMLODIPINE BESYLATE [Concomitant]
  25. NEXIUM [Concomitant]
  26. LIPITOR [Concomitant]
  27. TEKTURNA [Concomitant]
  28. AVONEX [Concomitant]
     Route: 030
     Dates: start: 20140226

REACTIONS (10)
  - Peripheral swelling [Not Recovered/Not Resolved]
  - Hypertension [Recovered/Resolved]
  - Joint swelling [Not Recovered/Not Resolved]
  - Dermatitis bullous [Not Recovered/Not Resolved]
  - Rash [Not Recovered/Not Resolved]
  - Rash macular [Not Recovered/Not Resolved]
  - Rash papular [Not Recovered/Not Resolved]
  - Pruritus [Not Recovered/Not Resolved]
  - Rash generalised [Recovered/Resolved]
  - Flushing [Not Recovered/Not Resolved]
